FAERS Safety Report 17446853 (Version 1)
Quarter: 2020Q1

REPORT INFORMATION
  Report Type: Spontaneous
  Country: CH (occurrence: CH)
  Receive Date: 20200221
  Receipt Date: 20200221
  Transmission Date: 20200409
  Serious: Yes (Hospitalization, Other)
  Sender: FDA-Public Use
  Company Number: CH-SA-2020SA041825

PATIENT
  Age: 71 Year
  Sex: Male

DRUGS (5)
  1. COAPROVEL [Suspect]
     Active Substance: HYDROCHLOROTHIAZIDE\IRBESARTAN
     Indication: CARDIAC FAILURE
  2. CALCIMAGON D3 [Concomitant]
     Active Substance: CALCIUM\CHOLECALCIFEROL
     Dosage: UNK, QD
  3. PANTOPRAZOL HELVEPHARM [Concomitant]
     Dosage: 20 MG, QD (20 MG (1? 0 - 0))
  4. ASPIRIN [ACETYLSALICYLIC ACID] [Concomitant]
     Active Substance: ASPIRIN
     Dosage: 100 MG, QD (100 MG (1 ? 0 - 0))
  5. ATORVASTATIN AXAPHARM [Concomitant]
     Active Substance: ATORVASTATIN CALCIUM
     Dosage: 20 MG (1 ? 0 - 0)

REACTIONS (1)
  - Hypersensitivity vasculitis [Recovered/Resolved]

NARRATIVE: CASE EVENT DATE: 20191223
